FAERS Safety Report 11877284 (Version 4)
Quarter: 2016Q2

REPORT INFORMATION
  Report Type: Spontaneous
  Country: US (occurrence: US)
  Receive Date: 20151229
  Receipt Date: 20160523
  Transmission Date: 20160815
  Serious: Yes (Hospitalization)
  Sender: FDA-Public Use
  Company Number: US-ACTELION PHARMACEUTICALS US, INC.-A-US2015-126048

PATIENT
  Age: 48 Year
  Sex: Male

DRUGS (5)
  1. VELETRI [Suspect]
     Active Substance: EPOPROSTENOL
     Indication: PULMONARY ARTERIAL HYPERTENSION
     Dosage: 77 NG/KG, PER MIN
     Route: 042
     Dates: start: 20120521
  2. COUMADIN [Concomitant]
     Active Substance: WARFARIN SODIUM
  3. SILDENAFIL. [Concomitant]
     Active Substance: SILDENAFIL
  4. VELETRI [Suspect]
     Active Substance: EPOPROSTENOL
     Dosage: 80 NG/KG, PER MIN
     Route: 042
  5. LETAIRIS [Concomitant]
     Active Substance: AMBRISENTAN

REACTIONS (12)
  - Chills [Recovering/Resolving]
  - Catheter site mass [Recovering/Resolving]
  - Catheter site erythema [Recovering/Resolving]
  - Infusion site pain [Unknown]
  - Abdominal discomfort [Unknown]
  - Catheter site swelling [Recovering/Resolving]
  - Asthenia [Unknown]
  - Infusion site extravasation [Unknown]
  - Catheter site infection [Recovering/Resolving]
  - Catheter placement [Recovering/Resolving]
  - Weight decreased [Unknown]
  - Dyspnoea [Unknown]
